FAERS Safety Report 8929029 (Version 1)
Quarter: 2012Q4

REPORT INFORMATION
  Report Type: 
  Country: PT (occurrence: PT)
  Receive Date: 20121127
  Receipt Date: 20121127
  Transmission Date: 20130627
  Serious: Yes (Hospitalization)
  Sender: FDA-Public Use
  Company Number: PT-SANOFI-AVENTIS-2012SA084866

PATIENT
  Sex: Female

DRUGS (1)
  1. LOVENOX [Suspect]
     Indication: PROPHYLAXIS
     Dosage: strength: 100mg
     Route: 058

REACTIONS (1)
  - Hepatotoxicity [Unknown]
